FAERS Safety Report 16881998 (Version 1)
Quarter: 2019Q4

REPORT INFORMATION
  Report Type: Spontaneous
  Country: CA (occurrence: CA)
  Receive Date: 20191003
  Receipt Date: 20191003
  Transmission Date: 20200122
  Serious: Yes (Life-Threatening, Hospitalization)
  Sender: FDA-Public Use
  Company Number: CA-HLSUS-2019-CA-001281

PATIENT
  Sex: 0

DRUGS (1)
  1. CLOZAPINE. [Suspect]
     Active Substance: CLOZAPINE
     Indication: SCHIZOPHRENIA
     Dosage: 400 MG ONCE DAILY
     Route: 048

REACTIONS (3)
  - Pancreatitis [Unknown]
  - Alcoholic pancreatitis [Unknown]
  - Rhabdomyolysis [Unknown]
